FAERS Safety Report 15115156 (Version 2)
Quarter: 2018Q3

REPORT INFORMATION
  Report Type: Spontaneous
  Country: RO (occurrence: RO)
  Receive Date: 20180706
  Receipt Date: 20180712
  Transmission Date: 20181010
  Serious: Yes (Hospitalization, Other)
  Sender: FDA-Public Use
  Company Number: RO-MYLANLABS-2018M1048169

PATIENT
  Age: 35 Year
  Sex: Male

DRUGS (37)
  1. CLOZAPINE. [Suspect]
     Active Substance: CLOZAPINE
     Indication: SCHIZOPHRENIA
     Dosage: 500 MG, QD
     Route: 048
     Dates: start: 20180129
  2. CLOZAPINE. [Suspect]
     Active Substance: CLOZAPINE
     Dosage: 25 MG, QW
     Route: 048
     Dates: start: 2018
  3. CLOZAPINE. [Suspect]
     Active Substance: CLOZAPINE
     Dosage: 25 MG, QD
     Route: 048
  4. ARIPIPRAZOLE. [Suspect]
     Active Substance: ARIPIPRAZOLE
     Indication: NARCISSISTIC PERSONALITY DISORDER
  5. OLANZAPINE. [Suspect]
     Active Substance: OLANZAPINE
     Indication: NARCISSISTIC PERSONALITY DISORDER
     Dosage: 5 MG, QD
  6. OLANZAPINE. [Suspect]
     Active Substance: OLANZAPINE
     Dosage: 20 MG, QD
     Dates: start: 2018
  7. AMISULPRID [Concomitant]
     Active Substance: AMISULPRIDE
     Dosage: 800 MG, QD
     Dates: start: 2018
  8. SODIUM VALPROATE [Concomitant]
     Active Substance: VALPROATE SODIUM
     Dosage: 300 MG, QD
  9. CLOZAPINE. [Suspect]
     Active Substance: CLOZAPINE
     Dosage: 75 MG, QD
     Route: 048
  10. QUETIAPINE. [Suspect]
     Active Substance: QUETIAPINE
     Indication: NARCISSISTIC PERSONALITY DISORDER
  11. NO DRUG NAME [Concomitant]
     Indication: PRODUCT USED FOR UNKNOWN INDICATION
     Dosage: 6 ML, QD
     Route: 048
     Dates: start: 20150615, end: 20150807
  12. NO DRUG NAME [Concomitant]
     Dosage: 6 ML, QD
     Route: 048
     Dates: start: 2015
  13. CLOZAPINE. [Suspect]
     Active Substance: CLOZAPINE
     Dosage: 100 MG, QD
     Route: 048
     Dates: start: 2018
  14. CLOZAPINE. [Suspect]
     Active Substance: CLOZAPINE
     Dosage: 100 MG, QW
     Route: 048
     Dates: start: 2018
  15. PALIPERIDONE. [Suspect]
     Active Substance: PALIPERIDONE
     Dosage: 12.5 MG, QD
  16. AMISULPRID [Concomitant]
     Active Substance: AMISULPRIDE
     Indication: PRODUCT USED FOR UNKNOWN INDICATION
     Dosage: 400 MG, QD
     Route: 048
     Dates: start: 2018, end: 2018
  17. ZIPRASIDONE. [Concomitant]
     Active Substance: ZIPRASIDONE
     Indication: PRODUCT USED FOR UNKNOWN INDICATION
     Dosage: 80 MG, QD
     Dates: start: 20150615, end: 20150807
  18. CLOZAPINE. [Suspect]
     Active Substance: CLOZAPINE
     Dosage: 25 MG, QD
     Route: 048
     Dates: start: 2018
  19. CLOZAPINE. [Suspect]
     Active Substance: CLOZAPINE
     Dosage: 500 MG, QD
     Route: 048
  20. QUETIAPINE. [Suspect]
     Active Substance: QUETIAPINE
     Indication: SCHIZOPHRENIA
     Dosage: 600 MG, QD
     Dates: start: 20150416, end: 20150525
  21. OLANZAPINE. [Suspect]
     Active Substance: OLANZAPINE
     Dosage: 15 MG, QD
  22. AMISULPRID [Concomitant]
     Active Substance: AMISULPRIDE
     Dosage: 200 MG, QD
     Dates: start: 2018
  23. CLOZAPINE. [Suspect]
     Active Substance: CLOZAPINE
     Indication: PSYCHOTIC DISORDER
     Dosage: 25 MG, QD
     Route: 048
     Dates: start: 20150615, end: 20150807
  24. CLOZAPINE. [Suspect]
     Active Substance: CLOZAPINE
     Dosage: 500 MG, QD
     Route: 048
     Dates: start: 2018
  25. CLOZAPINE. [Suspect]
     Active Substance: CLOZAPINE
     Dosage: 100 MG, QD
     Route: 048
  26. PALIPERIDONE. [Suspect]
     Active Substance: PALIPERIDONE
     Dosage: 6 MG, QD
     Dates: start: 20151002
  27. PALIPERIDONE. [Suspect]
     Active Substance: PALIPERIDONE
     Dosage: 9 MG, QD
     Dates: start: 201510
  28. ARIPIPRAZOLE. [Suspect]
     Active Substance: ARIPIPRAZOLE
     Indication: SCHIZOPHRENIA
     Dosage: 400 MG, MONTHLY
     Dates: start: 20150526, end: 20180614
  29. OLANZAPINE. [Suspect]
     Active Substance: OLANZAPINE
     Dosage: 15 MG, QD
     Dates: start: 20150526, end: 20180614
  30. SODIUM VALPROATE [Concomitant]
     Active Substance: VALPROATE SODIUM
     Indication: PRODUCT USED FOR UNKNOWN INDICATION
     Dosage: 1500 MG, QD
  31. CLOZAPINE. [Suspect]
     Active Substance: CLOZAPINE
     Dosage: 75 MG, QD
     Route: 048
     Dates: start: 2018
  32. LAMOTRIGINE. [Concomitant]
     Active Substance: LAMOTRIGINE
     Indication: PRODUCT USED FOR UNKNOWN INDICATION
     Dosage: 25 MG, QD
  33. PALIPERIDONE. [Suspect]
     Active Substance: PALIPERIDONE
     Indication: PRODUCT USED FOR UNKNOWN INDICATION
     Dosage: 12 MG, QD
     Dates: start: 20150615, end: 20150807
  34. OLANZAPINE. [Suspect]
     Active Substance: OLANZAPINE
     Indication: SCHIZOPHRENIA
     Dosage: 15 MG, QD
  35. AMISULPRID [Concomitant]
     Active Substance: AMISULPRIDE
     Dosage: 400 MG, QD
     Dates: start: 2018
  36. LAMOTRIGINE. [Concomitant]
     Active Substance: LAMOTRIGINE
     Dosage: 200 MG, QD
  37. TRIHEXIFENIDILO                    /00002601/ [Concomitant]
     Indication: PRODUCT USED FOR UNKNOWN INDICATION
     Dosage: 6 MG, QD

REACTIONS (9)
  - Neuroleptic malignant syndrome [Unknown]
  - Extrapyramidal disorder [Unknown]
  - Psychotic disorder [Unknown]
  - Refusal of treatment by patient [Unknown]
  - Skin abrasion [Unknown]
  - Transaminases increased [Unknown]
  - Therapy non-responder [Unknown]
  - Acute psychosis [Unknown]
  - Computerised tomogram abnormal [Unknown]

NARRATIVE: CASE EVENT DATE: 201507
